FAERS Safety Report 4876528-7 (Version None)
Quarter: 2006Q1

REPORT INFORMATION
  Report Type: 
  Country: None (occurrence: None)
  Receive Date: 20060110
  Receipt Date: 20051230
  Transmission Date: 20060701
  Serious: Yes (Hospitalization)
  Sender: FDA-Public Use
  Company Number: DE-GLAXOSMITHKLINE-B0405165B

PATIENT
  Sex: Female
  Weight: 67.5 kg

DRUGS (2)
  1. TOPOTECAN [Suspect]
     Indication: OVARIAN CANCER
     Route: 042
     Dates: start: 20051118, end: 20051122
  2. TOPOTECAN [Suspect]
     Dosage: 1MG PER DAY
     Route: 042
     Dates: start: 20051209, end: 20051215

REACTIONS (1)
  - MALIGNANT ASCITES [None]
